FAERS Safety Report 4326206-8 (Version None)
Quarter: 2004Q1

REPORT INFORMATION
  Report Type: 
  Country: None (occurrence: None)
  Receive Date: 20040324
  Receipt Date: 20040312
  Transmission Date: 20041129
  Serious: Yes (Hospitalization)
  Sender: FDA-Public Use
  Company Number: HQWYE787312MAR04

PATIENT
  Age: 63 Year
  Sex: Male

DRUGS (9)
  1. ANCARON (AMIODARONE ) [Suspect]
     Indication: ARRHYTHMIA
     Dosage: 200 MG 1X PER 1 DAY ORAL
     Route: 048
     Dates: start: 20010601, end: 20030301
  2. SOTALOL HCL [Concomitant]
  3. LASIX [Concomitant]
  4. ALDACTONE [Concomitant]
  5. WARFARIN SODIUM [Concomitant]
  6. ASPIRIN [Concomitant]
  7. ALLOPURINOL [Concomitant]
  8. FAMOTIDINE [Concomitant]
  9. PRAVASTATIN [Concomitant]

REACTIONS (1)
  - HEPATIC STEATOSIS [None]
